FAERS Safety Report 20423690 (Version 1)
Quarter: 2022Q1

REPORT INFORMATION
  Report Type: Spontaneous
  Country: JP (occurrence: JP)
  Receive Date: 20220203
  Receipt Date: 20220203
  Transmission Date: 20220423
  Serious: Yes (Hospitalization)
  Sender: FDA-Public Use
  Company Number: JP-BAXTER-2022BAX001933

PATIENT
  Age: 72 Year
  Sex: Male
  Weight: 72 kg

DRUGS (10)
  1. SUPRANE [Suspect]
     Active Substance: DESFLURANE
     Indication: Open reduction of fracture
     Route: 055
     Dates: start: 20220114, end: 20220114
  2. SUPRANE [Suspect]
     Active Substance: DESFLURANE
     Indication: General anaesthesia
  3. ROCURONIUM BROMIDE [Suspect]
     Active Substance: ROCURONIUM BROMIDE
     Indication: Catheter placement
     Dosage: STRENGTH: 50MG/5.0ML
     Route: 065
     Dates: start: 20220114, end: 20220114
  4. ROCURONIUM BROMIDE [Suspect]
     Active Substance: ROCURONIUM BROMIDE
     Indication: Hypotonia
  5. CALONAL [Concomitant]
     Active Substance: ACETAMINOPHEN
     Indication: Product used for unknown indication
     Dosage: DOSAGE FORM: TABLETS ?STRENGTH: 500 (UNITS NOT REPORTED)
     Route: 065
  6. FENTANYL [Concomitant]
     Active Substance: FENTANYL
     Indication: Product used for unknown indication
     Route: 065
  7. REMIFENTANIL [Concomitant]
     Active Substance: REMIFENTANIL
     Indication: Product used for unknown indication
     Route: 065
  8. LEVOBUPIVACAINE HYDROCHLORIDE [Concomitant]
     Active Substance: LEVOBUPIVACAINE HYDROCHLORIDE
     Indication: Product used for unknown indication
     Route: 065
  9. DEXAMETHASONE SODIUM PHOSPHATE [Concomitant]
     Active Substance: DEXAMETHASONE SODIUM PHOSPHATE
     Indication: Product used for unknown indication
     Route: 065
  10. PROPOFOL [Concomitant]
     Active Substance: PROPOFOL
     Indication: Product used for unknown indication
     Route: 065

REACTIONS (3)
  - End-tidal CO2 increased [Recovering/Resolving]
  - Procedural haemorrhage [Unknown]
  - Body temperature increased [Recovering/Resolving]

NARRATIVE: CASE EVENT DATE: 20220114
